FAERS Safety Report 13667546 (Version 3)
Quarter: 2017Q3

REPORT INFORMATION
  Report Type: Report from Study
  Country: US (occurrence: US)
  Receive Date: 20170620
  Receipt Date: 20170706
  Transmission Date: 20171127
  Serious: Yes (Other)
  Sender: FDA-Public Use
  Company Number: US-ROCHE-1942255

PATIENT
  Age: 68 Year
  Sex: Male
  Weight: 81.72 kg

DRUGS (7)
  1. ESBRIET [Suspect]
     Active Substance: PIRFENIDONE
     Indication: IDIOPATHIC PULMONARY FIBROSIS
     Dosage: 3 CAPSULES THREE TIMES PER DAY ;ONGOING: YES
     Route: 048
     Dates: start: 20170510
  2. ESBRIET [Suspect]
     Active Substance: PIRFENIDONE
     Dosage: 3 PILLS THREE TIMES A DAY
     Route: 048
     Dates: start: 201704, end: 201704
  3. ESBRIET [Suspect]
     Active Substance: PIRFENIDONE
     Indication: INTERSTITIAL LUNG DISEASE
     Dosage: PATIENT ONLY TOOK FOR FEW DAY
     Route: 048
     Dates: start: 20170613
  4. IMITREX [Concomitant]
     Active Substance: SUMATRIPTAN SUCCINATE
     Indication: MIGRAINE
     Dosage: AS NEEDED FOR MIGRAINES ;ONGOING: YES
     Route: 065
  5. ESBRIET [Suspect]
     Active Substance: PIRFENIDONE
     Dosage: 2 PILLS THREE TIMES A DAY
     Route: 048
     Dates: start: 201704, end: 201704
  6. ESBRIET [Suspect]
     Active Substance: PIRFENIDONE
     Dosage: 1 PILLS THREE TIMES A DAY
     Route: 048
     Dates: start: 201704, end: 201704
  7. METOPROLOL. [Concomitant]
     Active Substance: METOPROLOL
     Dosage: TWICE DAILY ;ONGOING: YES
     Route: 065
     Dates: start: 201511

REACTIONS (5)
  - Tachycardia [Recovered/Resolved]
  - Gastrooesophageal reflux disease [Recovered/Resolved with Sequelae]
  - Headache [Recovered/Resolved]
  - Clubbing [Unknown]
  - Productive cough [Unknown]

NARRATIVE: CASE EVENT DATE: 201704
